FAERS Safety Report 9934159 (Version 1)
Quarter: 2014Q1

REPORT INFORMATION
  Report Type: Spontaneous
  Country: US (occurrence: US)
  Receive Date: 20140228
  Receipt Date: 20140228
  Transmission Date: 20141002
  Serious: No
  Sender: FDA-Public Use
  Company Number: US-ABBVIE-14P-163-1197279-00

PATIENT
  Age: 64 Year
  Sex: Male

DRUGS (7)
  1. ANDROGEL [Suspect]
     Indication: BLOOD TESTOSTERONE DECREASED
     Route: 061
     Dates: start: 201301, end: 201306
  2. ANDROGEL [Suspect]
     Route: 061
     Dates: start: 201306, end: 201309
  3. ANDROGEL [Suspect]
     Route: 061
     Dates: start: 20140128
  4. ADVICOR [Concomitant]
     Indication: BLOOD CHOLESTEROL INCREASED
  5. ACTOS MET [Concomitant]
     Indication: DIABETES MELLITUS
  6. TRIBENZOR [Concomitant]
     Indication: HYPERTENSION
  7. ASPIRIN [Concomitant]
     Indication: CARDIOVASCULAR EVENT PROPHYLAXIS
     Dosage: 325 MILLIGRAM

REACTIONS (2)
  - Drug prescribing error [Unknown]
  - Blood testosterone decreased [Not Recovered/Not Resolved]
